FAERS Safety Report 23473675 (Version 2)
Quarter: 2024Q1

REPORT INFORMATION
  Report Type: Spontaneous
  Country: GB (occurrence: GB)
  Receive Date: 20240203
  Receipt Date: 20240224
  Transmission Date: 20240409
  Serious: Yes (Death, Life-Threatening, Hospitalization)
  Sender: FDA-Public Use
  Company Number: None

PATIENT
  Age: 65 Year
  Sex: Female
  Weight: 67 kg

DRUGS (12)
  1. CAPECITABINE [Suspect]
     Active Substance: CAPECITABINE
     Indication: Anal cancer
     Dates: start: 20230710, end: 20230720
  2. TIOTROPIUM BROMIDE [Concomitant]
     Active Substance: TIOTROPIUM BROMIDE
     Route: 055
  3. BUDESONIDE\FORMOTEROL FUMARATE [Concomitant]
     Active Substance: BUDESONIDE\FORMOTEROL FUMARATE
     Route: 055
  4. CALCIUM CARBONATE\CHOLECALCIFEROL [Concomitant]
     Active Substance: CALCIUM CARBONATE\CHOLECALCIFEROL
  5. BECLOMETHASONE\FORMOTEROL [Concomitant]
     Active Substance: BECLOMETHASONE\FORMOTEROL
     Route: 055
  6. COCODAMOL [Concomitant]
     Active Substance: ACETAMINOPHEN\CODEINE PHOSPHATE
  7. ALENDRONIC ACID [Concomitant]
     Active Substance: ALENDRONIC ACID
  8. ATORVASTATIN [Concomitant]
     Active Substance: ATORVASTATIN
  9. CLOPIDOGREL [Concomitant]
     Active Substance: CLOPIDOGREL BISULFATE
  10. AMITRIPTYLINE [Concomitant]
     Active Substance: AMITRIPTYLINE
     Dosage: AT NIGHT
  11. QUININE [Concomitant]
     Active Substance: QUININE
     Dosage: AT NIGHT
  12. MITOMYCIN [Concomitant]
     Active Substance: MITOMYCIN
     Route: 042
     Dates: start: 20230710

REACTIONS (9)
  - Mucosal inflammation [Fatal]
  - Mouth ulceration [Fatal]
  - Neutropenic sepsis [Fatal]
  - Pancytopenia [Fatal]
  - Gastrointestinal haemorrhage [Fatal]
  - Glossitis [Fatal]
  - Hypotension [Fatal]
  - Blood pressure decreased [Fatal]
  - Swollen tongue [Fatal]

NARRATIVE: CASE EVENT DATE: 20230710
